FAERS Safety Report 21106497 (Version 2)
Quarter: 2022Q3

REPORT INFORMATION
  Report Type: Spontaneous
  Country: DE (occurrence: None)
  Receive Date: 20220720
  Receipt Date: 20220726
  Transmission Date: 20221026
  Serious: Yes (Hospitalization, Other)
  Sender: FDA-Public Use
  Company Number: 2022A253873

PATIENT
  Age: 54 Year
  Sex: Female

DRUGS (2)
  1. OSIMERTINIB [Suspect]
     Active Substance: OSIMERTINIB
     Route: 048
  2. OSIMERTINIB [Suspect]
     Active Substance: OSIMERTINIB
     Dosage: REDUCED
     Route: 048

REACTIONS (6)
  - Metastases to central nervous system [Unknown]
  - Oesophagitis [Unknown]
  - Atypical pneumonia [Unknown]
  - Neutropenia [Unknown]
  - Bone lesion [Unknown]
  - Brain oedema [Unknown]

NARRATIVE: CASE EVENT DATE: 20220201
